FAERS Safety Report 5784578-1 (Version None)
Quarter: 2008Q2

REPORT INFORMATION
  Report Type: 
  Country: None (occurrence: None)
  Receive Date: 20080605
  Receipt Date: 20080424
  Transmission Date: 20081010
  Serious: No
  Sender: FDA-Public Use
  Company Number: A0721848A

PATIENT
  Age: 66 Year
  Sex: Female
  Weight: 85 kg

DRUGS (1)
  1. ALLI [Suspect]
     Dates: start: 20080405

REACTIONS (9)
  - CONSTIPATION [None]
  - COUGH [None]
  - FAECES DISCOLOURED [None]
  - FLATULENCE [None]
  - HEADACHE [None]
  - MOOD ALTERED [None]
  - NASOPHARYNGITIS [None]
  - RECTAL DISCHARGE [None]
  - WEIGHT INCREASED [None]
